FAERS Safety Report 4616377-8 (Version None)
Quarter: 2005Q1

REPORT INFORMATION
  Report Type: 
  Country: None (occurrence: None)
  Receive Date: 20050321
  Receipt Date: 20050307
  Transmission Date: 20050727
  Serious: Yes (Hospitalization)
  Sender: FDA-Public Use
  Company Number: 2005013853

PATIENT
  Age: 92 Year
  Sex: Female
  Weight: 58.0604 kg

DRUGS (20)
  1. ZOLOFT [Suspect]
     Indication: DISTURBANCE IN ATTENTION
     Dosage: 50 MG (50 MG, 1 IN 1 D), ORAL
     Route: 048
     Dates: start: 20040101
  2. ZOLOFT [Suspect]
     Indication: SLEEP DISORDER
     Dosage: 50 MG (50 MG, 1 IN 1 D), ORAL
     Route: 048
     Dates: start: 20040101
  3. QUETIAPINE FUMARTATE (QUETIAPINE FUMARATE) [Concomitant]
  4. OCUVITE (ASCORBIC ACID, RETINOL, TOCOPHEROL) [Concomitant]
  5. CELECOXIB (CELECOXIB) [Concomitant]
  6. LACTULOSE [Concomitant]
  7. DOCUSATE SODIM (DOSUCASTE SODIUM) [Concomitant]
  8. CIPROFLOXACIN [Concomitant]
  9. QUETIAPINE FUMARATE [Concomitant]
  10. RAMIPRIL [Concomitant]
  11. FUROSEMIDE [Concomitant]
  12. POTASSIUM CHLORIDE [Concomitant]
  13. OMEPRAZOLE [Concomitant]
  14. DIGOXIN [Concomitant]
  15. TOLTERODINE TARTRATE [Concomitant]
  16. ACETAMINOPHEN [Concomitant]
  17. ATORVASTATIN CALCIUM [Concomitant]
  18. NITROFURANTOIN [Concomitant]
  19. DONEPEZIL HCL [Concomitant]
  20. ACETYLSALICYLIC ACID SRT [Concomitant]

REACTIONS (16)
  - ANURIA [None]
  - ANXIETY [None]
  - CONFUSIONAL STATE [None]
  - CONSTIPATION [None]
  - CONTUSION [None]
  - CYSTITIS [None]
  - DRUG INEFFECTIVE [None]
  - EATING DISORDER [None]
  - FALL [None]
  - HALLUCINATION, VISUAL [None]
  - INSOMNIA [None]
  - LETHARGY [None]
  - POLLAKIURIA [None]
  - PSYCHOTIC DISORDER [None]
  - SOMNOLENCE [None]
  - SPEECH DISORDER [None]
